FAERS Safety Report 5005863-7 (Version None)
Quarter: 2006Q2

REPORT INFORMATION
  Report Type: 
  Country: None (occurrence: None)
  Receive Date: 20060517
  Receipt Date: 20060517
  Transmission Date: 20061013
  Serious: Yes (Other)
  Sender: FDA-Public Use
  Company Number: None

PATIENT
  Sex: Female

DRUGS (6)
  1. AVELOX [Suspect]
     Indication: SINUSITIS
     Dosage: 400MG QD PO
     Route: 048
  2. PREMPRO [Concomitant]
  3. PREVACID [Concomitant]
  4. ALLEGRA [Concomitant]
  5. AMOXICILLIN [Concomitant]
  6. KETEK [Concomitant]

REACTIONS (2)
  - HYPOAESTHESIA [None]
  - PARAESTHESIA [None]
